FAERS Safety Report 16715296 (Version 2)
Quarter: 2019Q3

REPORT INFORMATION
  Report Type: Spontaneous
  Country: US (occurrence: US)
  Receive Date: 20190819
  Receipt Date: 20190916
  Transmission Date: 20191005
  Serious: No
  Sender: FDA-Public Use
  Company Number: US-BAYER-2019-136726

PATIENT
  Age: 26 Year
  Sex: Male

DRUGS (5)
  1. KOGENATE FS [Suspect]
     Active Substance: ANTIHEMOPHILIC FACTOR, HUMAN RECOMBINANT
     Dosage: 2373 U, TIW. BETWEEN 12-JUL-2019 AND 20-JUL-2019 THE PATIENT TOOK TWO DOSES OF THE PRODUCT
     Route: 042
     Dates: start: 20190712, end: 201907
  2. KOGENATE FS [Suspect]
     Active Substance: ANTIHEMOPHILIC FACTOR, HUMAN RECOMBINANT
     Dosage: 2373 U, TIW. BETWEEN 12-JUL-2019 AND 20-JUL-2019 THE PATIENT TOOK TWO DOSES OF THE PRODUCT
     Route: 042
     Dates: start: 20190712, end: 201907
  3. KOGENATE FS [Suspect]
     Active Substance: ANTIHEMOPHILIC FACTOR, HUMAN RECOMBINANT
     Dosage: 2373 U, TIW. BETWEEN 12-JUL-2019 AND 20-JUL-2019 THE PATIENT TOOK TWO DOSES OF THE PRODUCT
     Route: 042
     Dates: start: 20190712, end: 201907
  4. KOGENATE FS [Suspect]
     Active Substance: ANTIHEMOPHILIC FACTOR, HUMAN RECOMBINANT
     Dosage: 2373 U, TIW. BETWEEN 12-JUL-2019 AND 20-JUL-2019 THE PATIENT TOOK TWO DOSES OF THE PRODUCT
     Route: 042
     Dates: start: 20190712, end: 201907
  5. KOGENATE FS [Suspect]
     Active Substance: ANTIHEMOPHILIC FACTOR, HUMAN RECOMBINANT
     Dosage: AS NEEDED FOR MAJOR BLEED OR TRAUMA

REACTIONS (4)
  - Fatigue [None]
  - Recalled product administered [None]
  - Recalled product [None]
  - Sluggishness [None]

NARRATIVE: CASE EVENT DATE: 201907
